FAERS Safety Report 21056112 (Version 2)
Quarter: 2022Q3

REPORT INFORMATION
  Report Type: Report from Study
  Country: CA (occurrence: CA)
  Receive Date: 20220708
  Receipt Date: 20220912
  Transmission Date: 20221027
  Serious: Yes (Other)
  Sender: FDA-Public Use
  Company Number: CA-BRISTOL-MYERS SQUIBB COMPANY-2022-044352

PATIENT
  Age: 67 Year
  Sex: Male

DRUGS (3)
  1. ONUREG [Suspect]
     Active Substance: AZACITIDINE
     Indication: Acute myeloid leukaemia
     Dosage: DOSE : 300
     Route: 065
     Dates: start: 20220304
  2. ONUREG [Suspect]
     Active Substance: AZACITIDINE
     Route: 065
  3. ONUREG [Suspect]
     Active Substance: AZACITIDINE
     Route: 048
     Dates: start: 20220222

REACTIONS (1)
  - Cytopenia [Not Recovered/Not Resolved]
